FAERS Safety Report 10157829 (Version 1)
Quarter: 2014Q2

REPORT INFORMATION
  Report Type: Spontaneous
  Country: JP (occurrence: JP)
  Receive Date: 20140507
  Receipt Date: 20140507
  Transmission Date: 20141212
  Serious: Yes (Hospitalization, Other)
  Sender: FDA-Public Use
  Company Number: JP-ASTELLAS-2014US004934

PATIENT
  Age: 63 Year
  Sex: Female
  Weight: 40 kg

DRUGS (1)
  1. AMPHOTERICIN B [Suspect]
     Indication: PRODUCT USED FOR UNKNOWN INDICATION
     Route: 042

REACTIONS (3)
  - Septic shock [Unknown]
  - Jaundice [Unknown]
  - Blood bilirubin increased [Unknown]
